FAERS Safety Report 21915231 (Version 2)
Quarter: 2024Q1

REPORT INFORMATION
  Report Type: Other
  Country: ZA (occurrence: None)
  Receive Date: 20230126
  Receipt Date: 20240206
  Transmission Date: 20240410
  Serious: Yes (Other)
  Sender: FDA-Public Use
  Company Number: ZA-ROCHE-3268954

PATIENT
  Sex: Male

DRUGS (3)
  1. OCREVUS [Suspect]
     Active Substance: OCRELIZUMAB
     Indication: Relapsing-remitting multiple sclerosis
     Dosage: THEREAFTER 600MG EVERY 6 MONTHS, LAST DOSE WAS IN /AUG/2023,
     Route: 041
     Dates: start: 202203
  2. OCREVUS [Suspect]
     Active Substance: OCRELIZUMAB
     Dosage: THEREAFTER 600MG EVERY 6 MONTHS,
     Route: 041
  3. AVONEX [Concomitant]
     Active Substance: INTERFERON BETA-1A
     Dates: start: 202101, end: 202201

REACTIONS (12)
  - Multiple sclerosis [Unknown]
  - Spinal flattening [Unknown]
  - Tremor [Unknown]
  - Spinal osteoarthritis [Unknown]
  - Cranial nerve paralysis [Unknown]
  - Gait disturbance [Unknown]
  - Kyphosis [Unknown]
  - Sensory disturbance [Unknown]
  - Hypoaesthesia [Unknown]
  - Cognitive disorder [Unknown]
  - Intention tremor [Unknown]
  - Gait disturbance [Unknown]
